FAERS Safety Report 6126098-0 (Version None)
Quarter: 2009Q1

REPORT INFORMATION
  Report Type: 
  Country: None (occurrence: None)
  Receive Date: 20090320
  Receipt Date: 20090313
  Transmission Date: 20090719
  Serious: Yes (Hospitalization)
  Sender: FDA-Public Use
  Company Number: A0555041A

PATIENT
  Age: 79 Year
  Sex: Female

DRUGS (13)
  1. FLOVENT [Suspect]
     Indication: ASTHMA
     Dosage: 2SPR TWICE PER DAY
     Route: 055
     Dates: start: 20030101
  2. ALBUTEROL [Concomitant]
  3. ANTIHISTAMINES [Concomitant]
  4. NASACORT AQ [Concomitant]
  5. ALLERGY SHOT [Concomitant]
  6. VITAMINS [Concomitant]
  7. DILTIAZEM CARDIZEM CD 240 [Concomitant]
  8. SERTRALINE [Concomitant]
  9. ACETAMINOPHEN [Concomitant]
  10. CLARINEX [Concomitant]
  11. LIPITOR [Concomitant]
  12. ALPRAZOLAM [Concomitant]
  13. CALCIUM [Concomitant]

REACTIONS (3)
  - DYSPHONIA [None]
  - KNEE ARTHROPLASTY [None]
  - SINUS DISORDER [None]
